FAERS Safety Report 18337943 (Version 1)
Quarter: 2020Q4

REPORT INFORMATION
  Report Type: Spontaneous
  Country: US (occurrence: US)
  Receive Date: 20201002
  Receipt Date: 20201002
  Transmission Date: 20210113
  Serious: No
  Sender: FDA-Public Use
  Company Number: US-CADILA HEALTHCARE LIMITED-US-ZYDUS-051781

PATIENT
  Age: 67 Year
  Sex: Female

DRUGS (1)
  1. POTASSIUM CITRATE 10 MILLIEQUIVALENT TABLET [Suspect]
     Active Substance: POTASSIUM CITRATE
     Indication: NEPHROLITHIASIS
     Dosage: 10 MILLIEQUIVALENT, QD
     Route: 048
     Dates: start: 2019, end: 20200523

REACTIONS (2)
  - Diarrhoea [Recovered/Resolved]
  - Product residue present [Recovered/Resolved]

NARRATIVE: CASE EVENT DATE: 20200523
